FAERS Safety Report 6219142-3 (Version None)
Quarter: 2009Q2

REPORT INFORMATION
  Report Type: 
  Country: None (occurrence: None)
  Receive Date: 20090605
  Receipt Date: 20090605
  Transmission Date: 20091009
  Serious: Yes (Life-Threatening, Hospitalization)
  Sender: FDA-Public Use
  Company Number: None

PATIENT
  Age: 54 Year
  Sex: Female

DRUGS (1)
  1. ESTRADIOL [Suspect]
     Dosage: 50 MCG QWEEK TOP
     Route: 061
     Dates: start: 20090109, end: 20090417

REACTIONS (1)
  - PULMONARY EMBOLISM [None]
